FAERS Safety Report 7749854-1 (Version None)
Quarter: 2011Q3

REPORT INFORMATION
  Report Type: 
  Country: None (occurrence: None)
  Receive Date: 20110907
  Receipt Date: 20110823
  Transmission Date: 20111222
  Serious: Yes (Other)
  Sender: FDA-Public Use
  Company Number: US-JNJFOC-20110813241

PATIENT

DRUGS (3)
  1. CYTARABINE [Suspect]
     Indication: MYELOID LEUKAEMIA
     Dosage: 100 MG/M2, 1 IN 1 DAY, INTRAVENOUS
     Route: 042
  2. DAUNORUBICIN HCL [Suspect]
     Indication: MYELOID LEUKAEMIA
     Dosage: 60 MG/M2, 1 IN 1 DAY
  3. DACOGEN [Suspect]
     Indication: MYELOID LEUKAEMIA
     Dosage: 20 MG/M2, INTRAVENOUS
     Route: 042

REACTIONS (1)
  - GASTROINTESTINAL TOXICITY [None]
